FAERS Safety Report 10016629 (Version 1)
Quarter: 2014Q1

REPORT INFORMATION
  Report Type: Spontaneous
  Country: US (occurrence: US)
  Receive Date: 20140317
  Receipt Date: 20140317
  Transmission Date: 20141002
  Serious: No
  Sender: FDA-Public Use
  Company Number: US-ALLERGAN-1301480US

PATIENT
  Age: 77 Year
  Sex: Female

DRUGS (1)
  1. FLUOROMETHOLONE, 0.1% [Suspect]
     Indication: EYE IRRITATION
     Dosage: 3 GTT, Q WEEK
     Route: 047
     Dates: start: 201209, end: 201301

REACTIONS (1)
  - Therapeutic response decreased [Unknown]
